FAERS Safety Report 4437336-4 (Version None)
Quarter: 2004Q3

REPORT INFORMATION
  Report Type: 
  Country: None (occurrence: None)
  Receive Date: 20040727
  Receipt Date: 20040401
  Transmission Date: 20050211
  Serious: No
  Sender: FDA-Public Use
  Company Number: 04P-163-0255787-00

PATIENT
  Age: 50 Year
  Sex: Male
  Weight: 98.8842 kg

DRUGS (6)
  1. SYNTHROID [Suspect]
     Indication: HYPOTHYROIDISM
     Dosage: SEE IMAGE
     Route: 048
     Dates: start: 20030101, end: 20030101
  2. SYNTHROID [Suspect]
     Indication: HYPOTHYROIDISM
     Dosage: SEE IMAGE
     Route: 048
     Dates: start: 20030101, end: 20040101
  3. SYNTHROID [Suspect]
     Indication: HYPOTHYROIDISM
     Dosage: SEE IMAGE
     Route: 048
     Dates: start: 20030601
  4. SYNTHROID [Suspect]
     Indication: HYPOTHYROIDISM
     Dosage: SEE IMAGE
     Route: 048
     Dates: start: 20040101
  5. TRAZODONE [Concomitant]
  6. ATORVASTATIN CALCIUM [Concomitant]

REACTIONS (2)
  - NAUSEA [None]
  - TREMOR [None]
